FAERS Safety Report 13026056 (Version 1)
Quarter: 2016Q4

REPORT INFORMATION
  Report Type: Spontaneous
  Country: US (occurrence: US)
  Receive Date: 20161213
  Receipt Date: 20161213
  Transmission Date: 20170207
  Serious: Yes (Hospitalization, Other)
  Sender: FDA-Public Use
  Company Number: None

PATIENT
  Age: 70 Year
  Sex: Male
  Weight: 83.25 kg

DRUGS (3)
  1. C-PAP MACHINE [Concomitant]
     Active Substance: DEVICE
  2. THYROID MEDICATION [Concomitant]
     Active Substance: UNSPECIFIED INGREDIENT
  3. VOLTAREN XR [Suspect]
     Active Substance: DICLOFENAC SODIUM
     Indication: BACK PAIN
     Route: 048

REACTIONS (4)
  - Reaction to drug excipients [None]
  - Throat tightness [None]
  - Vertigo [None]
  - Rash [None]

NARRATIVE: CASE EVENT DATE: 20161212
